FAERS Safety Report 24617951 (Version 1)
Quarter: 2024Q4

REPORT INFORMATION
  Report Type: Spontaneous
  Country: ES (occurrence: ES)
  Receive Date: 20241114
  Receipt Date: 20241114
  Transmission Date: 20250114
  Serious: Yes (Other)
  Sender: SAMSUNG BIOEPIS
  Company Number: None

PATIENT
  Age: 71 Year
  Sex: Female

DRUGS (5)
  1. IMRALDI [Suspect]
     Active Substance: ADALIMUMAB
     Indication: Crohn^s disease
     Dosage: 1 PEN ON 0.4ML;
     Route: 058
     Dates: start: 20240617
  2. OMEPRAZOL GOBENS [Concomitant]
     Indication: Product used for unknown indication
     Dosage: EFG; 28 CAPSULES; (BLISTER PVC-PVDC/AL);
     Route: 048
     Dates: start: 20240521
  3. ENALAPRIL NORMON [Concomitant]
     Indication: Product used for unknown indication
     Dosage: EFG; 60 TABLETS;
     Route: 048
     Dates: start: 20230316
  4. CALCIFEDIOL [Concomitant]
     Active Substance: CALCIFEDIOL
     Indication: Product used for unknown indication
     Dosage: 10 CAPSULES;
     Route: 048
     Dates: start: 20230316
  5. PARACETAMOL CINFA [Concomitant]
     Indication: Product used for unknown indication
     Dosage: EFG; 40 TABLETS;
     Route: 048
     Dates: start: 20240626

REACTIONS (2)
  - Headache [Recovered/Resolved]
  - Skin reaction [Recovered/Resolved]

NARRATIVE: CASE EVENT DATE: 20240626
